FAERS Safety Report 5669702-3 (Version None)
Quarter: 2008Q1

REPORT INFORMATION
  Report Type: 
  Country: None (occurrence: None)
  Receive Date: 20080313
  Receipt Date: 20080313
  Transmission Date: 20080703
  Serious: Yes (Other)
  Sender: FDA-Public Use
  Company Number: None

PATIENT
  Age: 52 Year
  Sex: Male
  Weight: 91.173 kg

DRUGS (1)
  1. PREVACID [Suspect]
     Indication: BARRETT'S OESOPHAGUS
     Dosage: 30MG 2 DAILY PO
     Route: 048
     Dates: start: 20080108, end: 20080110

REACTIONS (8)
  - ABDOMINAL PAIN [None]
  - ASTHMA [None]
  - BACK PAIN [None]
  - ERUCTATION [None]
  - FLATULENCE [None]
  - HEADACHE [None]
  - NOCTURIA [None]
  - VISION BLURRED [None]
